FAERS Safety Report 4947876-7 (Version None)
Quarter: 2006Q1

REPORT INFORMATION
  Report Type: 
  Country: None (occurrence: None)
  Receive Date: 20060320
  Receipt Date: 20050308
  Transmission Date: 20060701
  Serious: Yes (Other)
  Sender: FDA-Public Use
  Company Number: 2005UW03729

PATIENT
  Age: 54 Year
  Sex: Female
  Weight: 66.8 kg

DRUGS (13)
  1. CRESTOR [Suspect]
     Indication: HYPERCHOLESTEROLAEMIA
     Route: 048
     Dates: start: 20040101, end: 20041201
  2. TRICOR [Suspect]
     Route: 048
     Dates: end: 20041110
  3. ACCOLATE [Suspect]
     Indication: ASTHMA
     Route: 048
  4. BENECAR [Concomitant]
     Route: 048
  5. MAXZIDE [Concomitant]
     Route: 048
  6. PRAVACHOL [Concomitant]
     Dates: end: 20040801
  7. FOSAMAX [Concomitant]
     Route: 048
     Dates: end: 20050106
  8. TRICOR [Concomitant]
     Route: 048
  9. NASACORT [Concomitant]
     Indication: HYPERSENSITIVITY
  10. CLARITIN [Concomitant]
     Indication: HYPERSENSITIVITY
  11. ASPIRIN [Concomitant]
  12. ASTELIN [Concomitant]
  13. LEVID [Concomitant]
     Route: 048
     Dates: end: 20050109

REACTIONS (10)
  - CHOLECYSTITIS [None]
  - GALLBLADDER PERFORATION [None]
  - HEPATIC FIBROSIS [None]
  - HEPATITIS [None]
  - HEPATOCELLULAR DAMAGE [None]
  - HYPOTENSION [None]
  - IATROGENIC INJURY [None]
  - LIVER DISORDER [None]
  - POST PROCEDURAL COMPLICATION [None]
  - SYNCOPE VASOVAGAL [None]
